FAERS Safety Report 8363995-X (Version None)
Quarter: 2012Q2

REPORT INFORMATION
  Report Type: 
  Country: None (occurrence: None)
  Receive Date: 20120516
  Receipt Date: 20120213
  Transmission Date: 20120825
  Serious: Yes (Hospitalization)
  Sender: FDA-Public Use
  Company Number: US-ALEXION-A201200226

PATIENT
  Sex: Male

DRUGS (8)
  1. BACTRIM [Concomitant]
     Dosage: UNK
  2. IRON [Concomitant]
     Dosage: UNK
  3. SOLIRIS [Suspect]
     Indication: HAEMOLYTIC URAEMIC SYNDROME
     Dosage: 300 MG, QW
     Route: 042
     Dates: start: 20110201
  4. CELLCEPT [Concomitant]
     Dosage: UNK
     Dates: end: 20120101
  5. IMURAN [Concomitant]
     Dosage: UNK
  6. RAPAMUNE [Suspect]
     Indication: PROPHYLAXIS AGAINST TRANSPLANT REJECTION
     Dosage: UNK
  7. PREDNISONE TAB [Concomitant]
     Dosage: UNK
  8. MULTI-VITAMIN [Concomitant]
     Dosage: UNK

REACTIONS (2)
  - MUCOSAL INFLAMMATION [None]
  - VIRAL INFECTION [None]
